FAERS Safety Report 18877569 (Version 1)
Quarter: 2021Q1

REPORT INFORMATION
  Report Type: Spontaneous
  Country: TR (occurrence: TR)
  Receive Date: 20210211
  Receipt Date: 20210211
  Transmission Date: 20210420
  Serious: Yes (Other)
  Sender: FDA-Public Use
  Company Number: TR-SGP-000013

PATIENT
  Age: 47 Year

DRUGS (1)
  1. METHYLPREDNISOLONE. [Suspect]
     Active Substance: METHYLPREDNISOLONE
     Indication: COLITIS ISCHAEMIC
     Route: 065

REACTIONS (3)
  - Condition aggravated [Unknown]
  - C-reactive protein increased [Unknown]
  - Diarrhoea haemorrhagic [Unknown]
